FAERS Safety Report 5485947-X (Version None)
Quarter: 2007Q4

REPORT INFORMATION
  Report Type: 
  Country: None (occurrence: None)
  Receive Date: 20071012
  Receipt Date: 20071004
  Transmission Date: 20080405
  Serious: Yes (Death, Hospitalization, Other)
  Sender: FDA-Public Use
  Company Number: 2007SP011222

PATIENT
  Age: 23 Year
  Sex: Male

DRUGS (2)
  1. TEMODAL [Suspect]
     Indication: BRAIN NEOPLASM
     Dates: start: 20070401
  2. TEMODAL [Suspect]
     Indication: SARCOMA
     Dates: start: 20070401

REACTIONS (2)
  - DISEASE PROGRESSION [None]
  - RESPIRATORY DISTRESS [None]
